FAERS Safety Report 16844440 (Version 3)
Quarter: 2019Q4

REPORT INFORMATION
  Report Type: Spontaneous
  Country: JP (occurrence: JP)
  Receive Date: 20190924
  Receipt Date: 20191101
  Transmission Date: 20200122
  Serious: Yes (Hospitalization, Disabling, Other)
  Sender: FDA-Public Use
  Company Number: JP-GLAXOSMITHKLINE-JP2019JPN169946

PATIENT
  Age: 86 Year
  Sex: Male
  Weight: 50 kg

DRUGS (10)
  1. RIVAROXABAN [Concomitant]
     Active Substance: RIVAROXABAN
     Dosage: 10 MG, QD
     Route: 048
     Dates: start: 20190806, end: 20190827
  2. SEROQUEL [Concomitant]
     Active Substance: QUETIAPINE FUMARATE
     Dosage: 12.5 MG, QD
     Route: 048
     Dates: end: 20190825
  3. AVOLVE [Suspect]
     Active Substance: DUTASTERIDE
     Indication: BENIGN PROSTATIC HYPERPLASIA
     Dosage: 0.5 MG, QD
     Route: 048
     Dates: end: 20190827
  4. FUROSEMIDE TABLETS [Concomitant]
     Active Substance: FUROSEMIDE
     Dosage: 20 MG, QD
     Route: 048
     Dates: end: 20190827
  5. OLMESARTAN OD TABLETS [Concomitant]
     Dosage: 10 MG, QD
     Route: 048
     Dates: end: 20190827
  6. SPIRONOLACTONE TABLETS [Concomitant]
     Active Substance: SPIRONOLACTONE
     Dosage: 25 MG, QD
     Route: 048
     Dates: start: 20190806, end: 20190827
  7. MAGMITT TABLET [Concomitant]
     Dosage: 330 MG, BID
     Route: 048
     Dates: end: 20190827
  8. TAMSULOSIN HYDROCHLORIDE OD [Concomitant]
     Active Substance: TAMSULOSIN HYDROCHLORIDE
     Dosage: 0.2 MG, QD
     Route: 048
     Dates: end: 20190827
  9. LANSOPRAZOLE-OD TABLETS [Concomitant]
     Dosage: 30 MG, QD
     Route: 048
     Dates: end: 20190827
  10. RISPERDAL FINE GRANULES [Concomitant]
     Dosage: 0.025 G, QD
     Route: 048
     Dates: end: 20190822

REACTIONS (6)
  - Generalised oedema [Unknown]
  - Somnolence [Unknown]
  - Hypoalbuminaemia [Unknown]
  - Subdural haematoma [Not Recovered/Not Resolved]
  - Depressed level of consciousness [Unknown]
  - Dysphagia [Unknown]

NARRATIVE: CASE EVENT DATE: 20190819
